FAERS Safety Report 19062900 (Version 1)
Quarter: 2021Q1

REPORT INFORMATION
  Report Type: Report from Study
  Country: DE (occurrence: DE)
  Receive Date: 20210326
  Receipt Date: 20210326
  Transmission Date: 20210420
  Serious: Yes (Hospitalization)
  Sender: FDA-Public Use
  Company Number: DE-TAKEDA-2021TUS018412

PATIENT
  Age: 41 Year
  Sex: Male

DRUGS (5)
  1. PARATHYROID HORMONE [Suspect]
     Active Substance: PARATHYROID HORMONE
     Indication: HYPOPARATHYROIDISM
     Dosage: 100 MICROGRAM, QD
     Route: 058
     Dates: start: 20191121, end: 20210317
  2. PARATHYROID HORMONE [Suspect]
     Active Substance: PARATHYROID HORMONE
     Indication: HYPOPARATHYROIDISM
     Dosage: 100 MICROGRAM, QD
     Route: 058
     Dates: start: 20191121, end: 20210317
  3. CALCIUM VERLA [Concomitant]
     Active Substance: CALCIUM
     Indication: HYPOPARATHYROIDISM
     Dosage: 600 MILLIGRAM, QD
     Route: 048
     Dates: end: 20200318
  4. OSTEOTRIOL [Concomitant]
     Active Substance: CALCITRIOL
     Indication: HYPOPARATHYROIDISM
     Dosage: 0.5 MICROGRAM, QD
     Route: 048
     Dates: end: 20200308
  5. PARATHYROID HORMONE [Suspect]
     Active Substance: PARATHYROID HORMONE
     Indication: HYPOPARATHYROIDISM
     Dosage: 100 MICROGRAM, QD
     Route: 058
     Dates: start: 20191121, end: 20210317

REACTIONS (1)
  - Nephrolithiasis [Recovered/Resolved]

NARRATIVE: CASE EVENT DATE: 20210222
